FAERS Safety Report 4705299-X (Version None)
Quarter: 2005Q2

REPORT INFORMATION
  Report Type: 
  Country: None (occurrence: None)
  Receive Date: 20050629
  Receipt Date: 20050623
  Transmission Date: 20051028
  Serious: Yes (Death)
  Sender: FDA-Public Use
  Company Number: 05-06-1104

PATIENT
  Age: 49 Year
  Sex: Male

DRUGS (1)
  1. CLOZAPINE [Suspect]
     Indication: SCHIZOPHRENIA
     Dosage: 100-500MG QD ORAL
     Route: 048
     Dates: start: 19991201, end: 20050601

REACTIONS (1)
  - UPPER GASTROINTESTINAL HAEMORRHAGE [None]
